FAERS Safety Report 4295111-8 (Version None)
Quarter: 2004Q1

REPORT INFORMATION
  Report Type: 
  Country: None (occurrence: None)
  Receive Date: 20040212
  Receipt Date: 20040129
  Transmission Date: 20041129
  Serious: Yes (Hospitalization, Other)
  Sender: FDA-Public Use
  Company Number: 230023K04USA

PATIENT
  Weight: 72.5755 kg

DRUGS (1)
  1. REBIF [Suspect]
     Indication: MULTIPLE SCLEROSIS
     Dosage: 44 MCG
     Dates: start: 20030101

REACTIONS (3)
  - BLOOD PROLACTIN INCREASED [None]
  - MULTIPLE SCLEROSIS [None]
  - PITUITARY TUMOUR BENIGN [None]
